FAERS Safety Report 11909751 (Version 2)
Quarter: 2016Q1

REPORT INFORMATION
  Report Type: Spontaneous
  Country: DE (occurrence: DE)
  Receive Date: 20160112
  Receipt Date: 20160205
  Transmission Date: 20160526
  Serious: Yes (Other)
  Sender: FDA-Public Use
  Company Number: DE-BRISTOL-MYERS SQUIBB COMPANY-BMS-2016-000259

PATIENT
  Sex: Male

DRUGS (4)
  1. ALLOPURINOL. [Concomitant]
     Active Substance: ALLOPURINOL
     Indication: PRODUCT USED FOR UNKNOWN INDICATION
     Dosage: .50 DF, UNK
     Route: 065
  2. ELIQUIS [Suspect]
     Active Substance: APIXABAN
     Dosage: 1 DF, UNK
     Route: 048
  3. ELIQUIS [Suspect]
     Active Substance: APIXABAN
     Indication: CEREBROVASCULAR ACCIDENT PROPHYLAXIS
     Dosage: 2.5 MG, UNK
     Route: 048
     Dates: start: 201511
  4. DAFIRO [Concomitant]
     Active Substance: AMLODIPINE\VALSARTAN
     Indication: BLOOD PRESSURE MEASUREMENT
     Dosage: 1 DF, UNK
     Route: 065

REACTIONS (5)
  - Off label use [Unknown]
  - Laceration [Unknown]
  - Endoscopy gastrointestinal [Unknown]
  - Polyp [Unknown]
  - Polypectomy [Unknown]
